FAERS Safety Report 11244955 (Version 2)
Quarter: 2015Q3

REPORT INFORMATION
  Report Type: Spontaneous
  Country: CA (occurrence: CA)
  Receive Date: 20150707
  Receipt Date: 20150812
  Transmission Date: 20151125
  Serious: Yes (Other)
  Sender: FDA-Public Use
  Company Number: PHHY2014CA111489

PATIENT
  Age: 45 Year
  Sex: Female

DRUGS (1)
  1. GILENYA [Suspect]
     Active Substance: FINGOLIMOD HYDROCHLORIDE
     Indication: RELAPSING-REMITTING MULTIPLE SCLEROSIS

REACTIONS (11)
  - Herpes simplex [Recovering/Resolving]
  - Conjunctivitis bacterial [None]
  - Blister [Recovering/Resolving]
  - Corneal lesion [Recovering/Resolving]
  - Photophobia [Unknown]
  - Ocular discomfort [Unknown]
  - Rash [Recovering/Resolving]
  - Lacrimation increased [Unknown]
  - Lymphopenia [None]
  - Rash pustular [Recovering/Resolving]
  - Oral herpes [Recovered/Resolved]

NARRATIVE: CASE EVENT DATE: 20140615
